FAERS Safety Report 25181140 (Version 4)
Quarter: 2025Q4

REPORT INFORMATION
  Report Type: Report from Study
  Country: US (occurrence: None)
  Receive Date: 20250410
  Receipt Date: 20251127
  Transmission Date: 20260118
  Serious: Yes (Other)
  Sender: UCB
  Company Number: US-UCBSA-2025019935

PATIENT
  Age: 17 Year
  Weight: 74.376 kg

DRUGS (12)
  1. FENFLURAMINE [Suspect]
     Active Substance: FENFLURAMINE
     Indication: Severe myoclonic epilepsy of infancy
     Dosage: UNK
  2. FENFLURAMINE [Suspect]
     Active Substance: FENFLURAMINE
     Dosage: 22 MILLIGRAM PER DAY
  3. FENFLURAMINE [Suspect]
     Active Substance: FENFLURAMINE
     Dosage: 4 MILLILITER, 2X/DAY (BID)
  4. FENFLURAMINE [Suspect]
     Active Substance: FENFLURAMINE
     Dosage: 0.22 MILLIGRAM/KILOGRAM/DAY TOTALLY 13.2 MILLIGRAM PER DAY.
  5. FENFLURAMINE [Suspect]
     Active Substance: FENFLURAMINE
     Dosage: 0.29 MG/KG/DAY TO A TOTAL OF 17.6 MG/DAY
  6. FENFLURAMINE [Suspect]
     Active Substance: FENFLURAMINE
     Dosage: 11 MILLIGRAM, 2X/DAY (BID)
  7. FENFLURAMINE [Suspect]
     Active Substance: FENFLURAMINE
     Dosage: 0.3 MILLIGRAM/KILOGRAM/DAY TOTALLY 17.6 MILLIGRAM PER DAY.
  8. FENFLURAMINE [Suspect]
     Active Substance: FENFLURAMINE
     Dosage: 0.28 MILLIGRAM/KILOGRAM/DAY TOTALLY 17.6 MILLIGRAM PER DAY.
  9. FENFLURAMINE [Suspect]
     Active Substance: FENFLURAMINE
     Dosage: 0.29 MILLIGRAM/KILOGRAM/DAY TOTALLY 17.6 MILLIGRAM PER DAY.
  10. FENFLURAMINE [Suspect]
     Active Substance: FENFLURAMINE
     Dosage: 0.31 MILLIGRAM/KILOGRAM/DAY TOTALLY 17.6 MILLIGRAM PER DAY.
  11. DEPAKOTE [Concomitant]
     Active Substance: DIVALPROEX SODIUM
     Indication: Product used for unknown indication
     Dosage: 250 MILLIGRAM, 2X/DAY (BID)
  12. CLONAZEPAM [Concomitant]
     Active Substance: CLONAZEPAM
     Indication: Product used for unknown indication
     Dosage: 3 MILLIGRAM, QNS

REACTIONS (1)
  - Aortic valve incompetence [Recovering/Resolving]
